FAERS Safety Report 7042580-6 (Version None)
Quarter: 2010Q4

REPORT INFORMATION
  Report Type: 
  Country: None (occurrence: None)
  Receive Date: 20101013
  Receipt Date: 20101005
  Transmission Date: 20110411
  Serious: Yes (Other)
  Sender: FDA-Public Use
  Company Number: GXKR2010KR11238

PATIENT
  Age: 54 Year
  Sex: Female

DRUGS (5)
  1. FLUOROURACIL [Suspect]
     Indication: PANCREATIC CARCINOMA METASTATIC
     Dosage: 400 MG/M2 BOLUS
     Route: 065
  2. FLUOROURACIL [Suspect]
     Dosage: 2400 MG/M2, CONT, OVER 43 HOURS
  3. FLUOROURACIL [Suspect]
     Dosage: 1300 MG/M2, CONT
  4. OXALIPLATIN [Concomitant]
     Indication: PANCREATIC CARCINOMA METASTATIC
     Dosage: 85 MG/M2
     Route: 065
  5. LEUCOVORIN CALCIUM [Concomitant]
     Indication: PANCREATIC CARCINOMA METASTATIC
     Dosage: 200 MG/M2
     Route: 065

REACTIONS (4)
  - AZOTAEMIA [None]
  - HYPERAMMONAEMIC ENCEPHALOPATHY [None]
  - SOMNOLENCE [None]
  - STUPOR [None]
